FAERS Safety Report 22058765 (Version 1)
Quarter: 2023Q1

REPORT INFORMATION
  Report Type: Spontaneous
  Country: US (occurrence: None)
  Receive Date: 20230303
  Receipt Date: 20230303
  Transmission Date: 20230418
  Serious: Yes (Hospitalization)
  Sender: FDA-Public Use
  Company Number: 2023A050093

PATIENT
  Age: 100 Year
  Sex: Male

DRUGS (8)
  1. PULMICORT RESPULES [Suspect]
     Active Substance: BUDESONIDE
     Dosage: 0.5 MG / 2 ML, RT
     Route: 055
  2. DOCUSATE [Concomitant]
     Active Substance: DOCUSATE
     Route: 048
  3. ALCOHOL [Concomitant]
     Active Substance: ALCOHOL
     Dosage: 1 APPLICATION
     Route: 061
  4. FORMOTEROL [Concomitant]
     Active Substance: FORMOTEROL
     Dosage: 20MCG/2ML
     Route: 055
  5. FUROSEMIDE [Concomitant]
     Active Substance: FUROSEMIDE
     Dosage: 80 MG/8 ML, ONCE SCHEDULED
     Route: 042
  6. FUROSEMIDE [Concomitant]
     Active Substance: FUROSEMIDE
     Dosage: 80 MG/8 ML
     Route: 042
  7. PANTOPRAZOLE [Concomitant]
     Active Substance: PANTOPRAZOLE
     Route: 048
  8. TRAZODONE [Concomitant]
     Active Substance: TRAZODONE HYDROCHLORIDE
     Dosage: 2 TABLET
     Route: 048

REACTIONS (11)
  - Dyspnoea [Unknown]
  - Asthenia [Unknown]
  - Oedema peripheral [Unknown]
  - Muscular weakness [Unknown]
  - Gait disturbance [Unknown]
  - Hypervolaemia [Unknown]
  - Pleural effusion [Unknown]
  - Back pain [Unknown]
  - Lung consolidation [Unknown]
  - Atelectasis [Unknown]
  - Off label use [Unknown]
